FAERS Safety Report 4717798-5 (Version None)
Quarter: 2005Q3

REPORT INFORMATION
  Report Type: 
  Country: None (occurrence: None)
  Receive Date: 20050715
  Receipt Date: 20041029
  Transmission Date: 20060218
  Serious: Yes (Death, Life-Threatening)
  Sender: FDA-Public Use
  Company Number: 2004-00741

PATIENT

DRUGS (2)
  1. INTEGRILIN [Suspect]
     Dates: start: 20041029, end: 20041029
  2. HEPARIN [Concomitant]

REACTIONS (1)
  - HAEMORRHAGIC STROKE [None]
